FAERS Safety Report 25565384 (Version 1)
Quarter: 2025Q3

REPORT INFORMATION
  Report Type: Spontaneous
  Country: US (occurrence: None)
  Receive Date: 20250716
  Receipt Date: 20250716
  Transmission Date: 20251020
  Serious: Yes (Hospitalization)
  Sender: FDA-CTU
  Company Number: None

PATIENT
  Sex: Female

DRUGS (9)
  1. NUCALA [Suspect]
     Active Substance: MEPOLIZUMAB
     Indication: Asthma
     Dosage: INJECT 100 MG UNDER THE SKIN (SUBCUTANEOUS INJECTION) EVERY FOUR WEEKS
     Route: 058
     Dates: start: 20241106
  2. ALBUTEROL [Concomitant]
     Active Substance: ALBUTEROL
  3. CARVEDILOL [Concomitant]
     Active Substance: CARVEDILOL
  4. FOLIC ACID [Concomitant]
     Active Substance: FOLIC ACID
  5. HYDROCHLOROTHIAZIDE [Concomitant]
     Active Substance: HYDROCHLOROTHIAZIDE
  6. ALBUTEROL\IPRATROPIUM BROMIDE [Concomitant]
     Active Substance: ALBUTEROL\IPRATROPIUM BROMIDE
  7. METHOTREXATE [Concomitant]
     Active Substance: METHOTREXATE
  8. PREDNISONE [Concomitant]
     Active Substance: PREDNISONE
  9. VITAMIN D [Concomitant]
     Active Substance: VITAMIN D NOS

REACTIONS (2)
  - Adverse event [None]
  - Quality of life decreased [None]
